FAERS Safety Report 7397016-2 (Version None)
Quarter: 2011Q1

REPORT INFORMATION
  Report Type: 
  Country: None (occurrence: None)
  Receive Date: 20110328
  Receipt Date: 20110322
  Transmission Date: 20110831
  Serious: Yes (Hospitalization, Other)
  Sender: FDA-Public Use
  Company Number: MIN-00698

PATIENT
  Age: 81 Year
  Sex: Male
  Weight: 80 kg

DRUGS (8)
  1. DIGOXIN [Concomitant]
  2. ASPIRIN [Concomitant]
  3. MINOTABS (MINOCYCLINE), 50MG [Suspect]
     Indication: ROSACEA
     Dosage: 50MG, BD, ORALLY
     Route: 048
     Dates: start: 19940101, end: 20100601
  4. FUROSEMIDE [Concomitant]
  5. LEVOTHYROXINE SODIUM [Concomitant]
  6. CILAZAPRIL [Concomitant]
  7. OXYBUTYNIN [Concomitant]
  8. PANTOPRAZOLE [Concomitant]

REACTIONS (7)
  - CONDITION AGGRAVATED [None]
  - GENERAL PHYSICAL HEALTH DETERIORATION [None]
  - SCLERAL DISCOLOURATION [None]
  - SKIN DISCOLOURATION [None]
  - PIGMENTATION DISORDER [None]
  - DYSPNOEA EXERTIONAL [None]
  - DECREASED APPETITE [None]
